FAERS Safety Report 7689027-4 (Version None)
Quarter: 2011Q3

REPORT INFORMATION
  Report Type: 
  Country: None (occurrence: None)
  Receive Date: 20110817
  Receipt Date: 20110802
  Transmission Date: 20111222
  Serious: Yes (Disabling)
  Sender: FDA-Public Use
  Company Number: JP-WATSON-2011-12046

PATIENT
  Age: 77 Year
  Sex: Male

DRUGS (2)
  1. ANTICANCER DRUG [Concomitant]
     Indication: PRODUCT USED FOR UNKNOWN INDICATION
  2. RAPAFLO [Suspect]
     Indication: DYSURIA
     Dosage: 4 MG, DAILY
     Route: 048
     Dates: start: 20080212, end: 20101121

REACTIONS (1)
  - RENAL FAILURE CHRONIC [None]
